FAERS Safety Report 6282337-7 (Version None)
Quarter: 2009Q3

REPORT INFORMATION
  Report Type: 
  Country: None (occurrence: None)
  Receive Date: 20090722
  Receipt Date: 20090722
  Transmission Date: 20100115
  Serious: Yes (Hospitalization)
  Sender: FDA-Public Use
  Company Number: None

PATIENT
  Sex: Male
  Weight: 127.0072 kg

DRUGS (3)
  1. VESICARE [Suspect]
     Indication: POLLAKIURIA
     Dosage: DAILY PO
     Route: 048
     Dates: start: 20090612, end: 20090715
  2. KAPIDEX [Suspect]
     Indication: ABDOMINAL PAIN
     Dosage: 60MG BID PO
     Route: 048
     Dates: start: 20090715, end: 20090717
  3. KAPIDEX [Suspect]
     Indication: GASTRITIS
     Dosage: 60MG BID PO
     Route: 048
     Dates: start: 20090715, end: 20090717

REACTIONS (1)
  - SMALL INTESTINAL OBSTRUCTION [None]
